FAERS Safety Report 5655834-2 (Version None)
Quarter: 2008Q1

REPORT INFORMATION
  Report Type: 
  Country: None (occurrence: None)
  Receive Date: 20080307
  Receipt Date: 20071029
  Transmission Date: 20080703
  Serious: Yes (Other)
  Sender: FDA-Public Use
  Company Number: US-ABBOTT-08P-163-0441137-00

PATIENT
  Sex: Male

DRUGS (5)
  1. KALETRA [Suspect]
     Indication: HIV INFECTION
     Dates: start: 20030301, end: 20060101
  2. KALETRA [Suspect]
     Indication: HIV INFECTION
     Dates: start: 20060101
  3. DIDANOSINE [Suspect]
     Indication: HIV INFECTION
     Dates: start: 20030301
  4. TENOFOVIR DISOPROXIL FUMARATE [Suspect]
     Indication: HIV INFECTION
     Dates: end: 20030301
  5. FENOFIBRATE [Concomitant]
     Indication: HYPERTRIGLYCERIDAEMIA
     Dates: start: 20030701

REACTIONS (4)
  - CD4 LYMPHOCYTES DECREASED [None]
  - HYPERTRIGLYCERIDAEMIA [None]
  - NON-HODGKIN'S LYMPHOMA [None]
  - VIRAL LOAD INCREASED [None]
